FAERS Safety Report 8635205 (Version 3)
Quarter: 2012Q4

REPORT INFORMATION
  Report Type: 
  Country: US (occurrence: US)
  Receive Date: 20120626
  Receipt Date: 20121211
  Transmission Date: 20130627
  Serious: Yes (Hospitalization, Other)
  Sender: FDA-Public Use
  Company Number: US-PFIZER INC-2012148664

PATIENT
  Sex: Female

DRUGS (5)
  1. GLUCOTROL [Suspect]
     Dosage: UNK
  2. CALAN [Suspect]
     Dosage: UNK
  3. LYRICA [Suspect]
     Dosage: 75 mg, UNK
  4. CALAN SR [Suspect]
     Dosage: 240 mg, UNK
  5. CELEBREX [Suspect]
     Dosage: UNK

REACTIONS (4)
  - Spinal disorder [Unknown]
  - Arthralgia [Unknown]
  - Back pain [Unknown]
  - Sensation of foreign body [Unknown]
